FAERS Safety Report 6446806-9 (Version None)
Quarter: 2009Q4

REPORT INFORMATION
  Report Type: 
  Country: None (occurrence: None)
  Receive Date: 20091119
  Receipt Date: 20091109
  Transmission Date: 20100525
  Serious: Yes (Other)
  Sender: FDA-Public Use
  Company Number: PHHY2009BR49456

PATIENT
  Sex: Male

DRUGS (2)
  1. DIOVAN [Suspect]
     Dosage: 160 MG
  2. DIOVAN [Suspect]
     Dosage: 320 MG

REACTIONS (1)
  - NEPHROLITHIASIS [None]
